FAERS Safety Report 16398127 (Version 1)
Quarter: 2019Q2

REPORT INFORMATION
  Report Type: Spontaneous
  Country: US (occurrence: US)
  Receive Date: 20190430
  Receipt Date: 20190430
  Transmission Date: 20190711
  Serious: Yes (Life-Threatening, Hospitalization)
  Sender: FDA-Public Use
  Company Number: None

PATIENT
  Age: 70 Year
  Sex: Male
  Weight: 76.84 kg

DRUGS (4)
  1. HYDROXYZINE [Suspect]
     Active Substance: HYDROXYZINE HYDROCHLORIDE
     Indication: NAUSEA
     Route: 048
     Dates: start: 20190226, end: 20190401
  2. ONDANSETRON [Suspect]
     Active Substance: ONDANSETRON
     Indication: NAUSEA
     Route: 042
     Dates: start: 20190331, end: 20190331
  3. ONDANSETRON [Suspect]
     Active Substance: ONDANSETRON
     Indication: VOMITING
     Route: 042
     Dates: start: 20190331, end: 20190331
  4. HYDROXYZINE [Suspect]
     Active Substance: HYDROXYZINE HYDROCHLORIDE
     Indication: VOMITING
     Route: 048
     Dates: start: 20190226, end: 20190401

REACTIONS (5)
  - Electrolyte imbalance [None]
  - Ventricular arrhythmia [None]
  - Palpitations [None]
  - Tachycardia [None]
  - Unresponsive to stimuli [None]

NARRATIVE: CASE EVENT DATE: 20190331
